FAERS Safety Report 6955132-0 (Version None)
Quarter: 2010Q3

REPORT INFORMATION
  Report Type: 
  Country: None (occurrence: None)
  Receive Date: 20100826
  Receipt Date: 20100813
  Transmission Date: 20110219
  Serious: Yes (Hospitalization)
  Sender: FDA-Public Use
  Company Number: 2010-2747

PATIENT
  Sex: Female

DRUGS (7)
  1. APO-GO (APO-GO) (APOMORPHINE HYDROCHLORIDE) (APOMORPHINE HYDROCHLORIDE [Suspect]
     Indication: PARKINSON'S DISEASE
     Dates: start: 20100601, end: 20100701
  2. ARAVA [Concomitant]
  3. CORTIZOLE (HYDROCORTISONE) [Concomitant]
  4. MADOPAR (MADOPAR /00349201/) [Concomitant]
  5. COMPTAN (ENTACAPONE) [Concomitant]
  6. MYOREL (ALL OTHER THERAPEUTIC PRODUCTS) [Concomitant]
  7. ANTIDEPRESSANTS (ANTIDEPRESSANTS) [Concomitant]

REACTIONS (2)
  - ANAEMIA [None]
  - RED BLOOD CELL SEDIMENTATION RATE INCREASED [None]
